FAERS Safety Report 9509232 (Version 1)
Quarter: 2013Q3

REPORT INFORMATION
  Report Type: Spontaneous
  Country: US (occurrence: US)
  Receive Date: 20130909
  Receipt Date: 20130909
  Transmission Date: 20140515
  Serious: No
  Sender: FDA-Public Use
  Company Number: US-BRISTOL-MYERS SQUIBB COMPANY-19005867

PATIENT
  Age: 19 Year
  Sex: Female

DRUGS (4)
  1. ABILIFY [Suspect]
  2. LEXAPRO [Suspect]
  3. REMERON [Suspect]
  4. COGENTIN [Suspect]

REACTIONS (1)
  - White blood cell count decreased [Unknown]
